FAERS Safety Report 15836847 (Version 4)
Quarter: 2020Q3

REPORT INFORMATION
  Report Type: Report from Study
  Country: BE (occurrence: BE)
  Receive Date: 20190117
  Receipt Date: 20200221
  Transmission Date: 20201104
  Serious: Yes (Hospitalization)
  Sender: FDA-Public Use
  Company Number: BE-ROCHE-2245254

PATIENT
  Age: 74 Year
  Sex: Female
  Weight: 70 kg

DRUGS (45)
  1. FORLAX [MACROGOL 4000] [Concomitant]
     Active Substance: POLYETHYLENE GLYCOL 4000
     Indication: CONSTIPATION
     Route: 048
     Dates: start: 20181021
  2. ENTEROL [SACCHAROMYCES BOULARDII] [Concomitant]
     Indication: DIARRHOEA
     Route: 048
     Dates: start: 20190111, end: 20190122
  3. RED BLOOD CELLS [Concomitant]
     Active Substance: HUMAN RED BLOOD CELL
     Dosage: 1 UNIT
     Route: 042
     Dates: start: 20181218, end: 20181218
  4. NEULASTA [Concomitant]
     Active Substance: PEGFILGRASTIM
     Route: 058
     Dates: start: 20190108, end: 20190108
  5. LANTUS [Concomitant]
     Active Substance: INSULIN GLARGINE
     Indication: TYPE 2 DIABETES MELLITUS
     Route: 058
  6. TRAJENTA [Concomitant]
     Active Substance: LINAGLIPTIN
     Indication: TYPE 2 DIABETES MELLITUS
     Route: 048
     Dates: start: 20181015
  7. FOLAVIT [Concomitant]
     Active Substance: FOLIC ACID
     Indication: ANAEMIA
     Route: 048
     Dates: start: 20190115
  8. RED BLOOD CELLS [Concomitant]
     Active Substance: HUMAN RED BLOOD CELL
     Dosage: 1 UNIT
     Route: 042
     Dates: start: 20181223, end: 20181223
  9. PRIVIGEN [Concomitant]
     Active Substance: HUMAN IMMUNOGLOBULIN G
     Indication: RESPIRATORY TRACT INFECTION
     Route: 042
     Dates: start: 20181212, end: 20181212
  10. GLUCOPHAGE [Concomitant]
     Active Substance: METFORMIN HYDROCHLORIDE
     Route: 048
     Dates: start: 20190117, end: 20190121
  11. FLAGYL [Concomitant]
     Active Substance: METRONIDAZOLE\METRONIDAZOLE HYDROCHLORIDE
     Indication: CLOSTRIDIUM DIFFICILE COLITIS
     Route: 048
     Dates: start: 20190304
  12. RITUXIMAB. [Suspect]
     Active Substance: RITUXIMAB
     Indication: DIFFUSE LARGE B-CELL LYMPHOMA
     Dosage: DATE OF MOST RECENT DOSE OF RITUXIMAB PRIOR TO SAE ONSET 03 JAN 2019 (626.25 MG)
     Route: 042
     Dates: start: 20181019
  13. LYRICA [Concomitant]
     Active Substance: PREGABALIN
     Indication: HERPES ZOSTER
     Route: 048
     Dates: start: 20181018
  14. PULMICORT TURBUHALER [Concomitant]
     Active Substance: BUDESONIDE
     Indication: RESPIRATORY TRACT INFECTION
     Route: 050
     Dates: start: 20181210, end: 20181220
  15. REPAGLINIDE. [Concomitant]
     Active Substance: REPAGLINIDE
     Route: 048
     Dates: start: 20190125
  16. NEULASTA [Concomitant]
     Active Substance: PEGFILGRASTIM
     Indication: NEUTROPENIA
     Route: 058
     Dates: start: 20181218, end: 20181218
  17. PARACETAMOL [Concomitant]
     Active Substance: ACETAMINOPHEN
     Indication: FEBRILE NEUTROPENIA
     Route: 042
     Dates: start: 20190224
  18. PLACEBO [Suspect]
     Active Substance: UNSPECIFIED INGREDIENT
     Indication: DIFFUSE LARGE B-CELL LYMPHOMA
     Dosage: DATE OF MOST RECENT DOSE PRIOR TO SAE ONSET: 03 JAN 2019
     Route: 042
     Dates: start: 20181019
  19. DOXORUBICIN [Suspect]
     Active Substance: DOXORUBICIN
     Indication: DIFFUSE LARGE B-CELL LYMPHOMA
     Dosage: ON DAY 1 (AS PER PROTOCOL)?DATE OF MOST RECENT DOSE OF DOXORUBICIN PRIOR TO SAE ONSET 03 JAN 2019 (8
     Route: 042
     Dates: start: 20181019
  20. L?THYROXINE [LEVOTHYROXINE] [Concomitant]
     Active Substance: LEVOTHYROXINE
     Indication: HYPOTHYROIDISM
     Route: 048
     Dates: start: 20181129
  21. ACTRAPID [Concomitant]
     Active Substance: INSULIN HUMAN
     Indication: TYPE 2 DIABETES MELLITUS
     Route: 058
  22. ACICLOVIR [Concomitant]
     Active Substance: ACYCLOVIR
     Indication: HERPES VIRUS INFECTION
     Route: 048
     Dates: start: 20181016
  23. REPAGLINIDE. [Concomitant]
     Active Substance: REPAGLINIDE
     Indication: TYPE 2 DIABETES MELLITUS
     Route: 048
     Dates: start: 20190121, end: 20190124
  24. TRIANAL C [Concomitant]
     Route: 061
     Dates: start: 20190115, end: 20190124
  25. KALIUM [POTASSIUM CHLORIDE] [Concomitant]
     Route: 048
     Dates: start: 20190114, end: 20190122
  26. NYSTATINE [Concomitant]
     Indication: MUCOSAL INFLAMMATION
     Dosage: 1 OTHER
     Route: 048
     Dates: start: 20190111
  27. GLUCOPHAGE [Concomitant]
     Active Substance: METFORMIN HYDROCHLORIDE
     Indication: TYPE 2 DIABETES MELLITUS
     Route: 048
     Dates: start: 20181218, end: 20181224
  28. PIPERACILLIN AND TAZOBACTAM [Concomitant]
     Active Substance: PIPERACILLIN SODIUM\TAZOBACTAM SODIUM
     Indication: FEBRILE NEUTROPENIA
     Route: 042
     Dates: start: 20190224
  29. DEXERYL [GLYCEROL;PARAFFIN, LIQUID;WHITE SOFT PARAFFIN] [Concomitant]
     Active Substance: GLYCERIN\MINERAL OIL\PETROLATUM
     Indication: ECZEMA
     Route: 061
  30. IMODIUM [Concomitant]
     Active Substance: LOPERAMIDE HYDROCHLORIDE
     Indication: APPENDICITIS
     Route: 048
     Dates: start: 20181102
  31. RED BLOOD CELLS [Concomitant]
     Active Substance: HUMAN RED BLOOD CELL
     Dosage: 1 UNIT
     Route: 042
     Dates: start: 20190112, end: 20190112
  32. CYCLOPHOSPHAMIDE. [Suspect]
     Active Substance: CYCLOPHOSPHAMIDE
     Indication: DIFFUSE LARGE B-CELL LYMPHOMA
     Dosage: DATE OF MOST RECENT DOSE OF CYCLOPHOSPHAMIDE PRIOR TO SAE ONSET 03 JAN 2019 (940 MG)
     Route: 042
     Dates: start: 20181019
  33. BETAMETHASONE. [Concomitant]
     Active Substance: BETAMETHASONE
     Indication: ECZEMA
     Route: 061
  34. FRAXIPARINE [Concomitant]
     Active Substance: NADROPARIN CALCIUM
     Indication: DEEP VEIN THROMBOSIS
     Route: 058
     Dates: start: 20181015
  35. LYSOMUCIL [Concomitant]
     Active Substance: ACETYLCYSTEINE
     Indication: RESPIRATORY TRACT INFECTION
     Route: 048
     Dates: start: 20181211
  36. ATROVENT [Concomitant]
     Active Substance: IPRATROPIUM BROMIDE
     Indication: RESPIRATORY TRACT INFECTION
     Route: 050
     Dates: start: 20181210, end: 20181220
  37. RED BLOOD CELLS [Concomitant]
     Active Substance: HUMAN RED BLOOD CELL
     Indication: ANAEMIA
     Dosage: 1 UNIT
     Route: 042
     Dates: start: 20181212, end: 20181212
  38. KALIUM [POTASSIUM CHLORIDE] [Concomitant]
     Route: 048
     Dates: start: 20181221, end: 20181223
  39. POLATUZUMAB VEDOTIN. [Suspect]
     Active Substance: POLATUZUMAB VEDOTIN
     Indication: DIFFUSE LARGE B-CELL LYMPHOMA
     Dosage: DOSE OF LAST POLATUZUMAB VEDOTIN ADMINISTERED: 124.2 MG?DATE OF MOST RECENT DOSE OF POLATUZUMAB VEDO
     Route: 042
     Dates: start: 20181019
  40. FRAXIPARINE [Concomitant]
     Active Substance: NADROPARIN CALCIUM
     Route: 058
     Dates: start: 20190121, end: 20190124
  41. PREDNISONE. [Suspect]
     Active Substance: PREDNISONE
     Indication: DIFFUSE LARGE B-CELL LYMPHOMA
     Dosage: 100 MG/DAY DAYS 1?5 OF EVERY 21?DAY (AS PER PROTOCOL)?DATE OF MOST RECENT DOSE OF PREDNISONE PRIOR T
     Route: 048
     Dates: start: 20181019
  42. EMCONCOR [Concomitant]
     Active Substance: BISOPROLOL FUMARATE
     Indication: HYPERTENSION
     Route: 048
  43. ZYLORIC [Concomitant]
     Active Substance: ALLOPURINOL
     Indication: TUMOUR LYSIS SYNDROME
     Route: 048
     Dates: start: 20181015
  44. FRAXIPARINE [Concomitant]
     Active Substance: NADROPARIN CALCIUM
     Route: 058
     Dates: start: 20190111, end: 20190111
  45. KALIUM [POTASSIUM CHLORIDE] [Concomitant]
     Indication: HYPOKALAEMIA
     Route: 048
     Dates: start: 20181213, end: 20181216

REACTIONS (2)
  - Decreased appetite [Not Recovered/Not Resolved]
  - General physical health deterioration [Recovered/Resolved]

NARRATIVE: CASE EVENT DATE: 20190111
